FAERS Safety Report 26087119 (Version 1)
Quarter: 2025Q4

REPORT INFORMATION
  Report Type: Spontaneous
  Country: BR (occurrence: BR)
  Receive Date: 20251125
  Receipt Date: 20251125
  Transmission Date: 20260118
  Serious: Yes (Other)
  Sender: BAYER HEALTHCARE PHARMACEUTICALS INC.
  Company Number: BR-BAYER-2025A154060

PATIENT
  Sex: Female

DRUGS (1)
  1. KYLEENA [Suspect]
     Active Substance: LEVONORGESTREL
     Dosage: 17.5?G/DAY
     Route: 015
     Dates: start: 20230113

REACTIONS (8)
  - Hormone receptor positive breast cancer [None]
  - Hormone level abnormal [None]
  - Infertility female [None]
  - Musculoskeletal disorder [None]
  - Skin disorder [None]
  - Emotional disorder [None]
  - Social problem [None]
  - Artificial menopause [None]
